FAERS Safety Report 16058915 (Version 22)
Quarter: 2020Q1

REPORT INFORMATION
  Report Type: Spontaneous
  Country: US (occurrence: US)
  Receive Date: 20190311
  Receipt Date: 20200311
  Transmission Date: 20200409
  Serious: Yes (Hospitalization, Other)
  Sender: FDA-Public Use
  Company Number: US-PFIZER INC-2019098616

PATIENT
  Age: 52 Year
  Sex: Female
  Weight: 61 kg

DRUGS (19)
  1. CELEBREX [Suspect]
     Active Substance: CELECOXIB
     Indication: MIGRAINE
     Dosage: 100 MG, TWICE DAILY (ONE IN AM AND ONE IN PM)
     Route: 048
     Dates: start: 2009, end: 201901
  2. CELEBREX [Suspect]
     Active Substance: CELECOXIB
     Dosage: 400 MG, DAILY (200 MG IN THE MORNING AND 200 MG AT THE NIGHT)
  3. CLARITIN [Concomitant]
     Active Substance: LORATADINE
     Dosage: UNK, 2X/DAY (24 HR 2XDAY)
  4. SYNTHROID [Concomitant]
     Active Substance: LEVOTHYROXINE SODIUM
     Indication: THYROID DISORDER
     Dosage: 250 UG, 1X/DAY (EVERY MORNING)
  5. CELEBREX [Suspect]
     Active Substance: CELECOXIB
     Indication: INFLAMMATION
     Dosage: 200 MG, TWICE DAILY (IN MORNING AND AT NIGHT)
     Route: 048
     Dates: start: 2019
  6. CELEBREX [Suspect]
     Active Substance: CELECOXIB
     Indication: SWELLING
     Dosage: 200 MG, AS NEEDED (TWICE A DAY FOR 7 DAYS)
     Route: 048
  7. CELEBREX [Suspect]
     Active Substance: CELECOXIB
     Dosage: 100 MG, 2X/DAY
     Route: 048
     Dates: start: 2009
  8. ZIOPTAN [Concomitant]
     Active Substance: TAFLUPROST
     Indication: GLAUCOMA
     Dosage: 1 GTT, ONCE DAILY (IN EACH EYE AT BEDTIME)
     Route: 047
  9. HYDROCODONE BITARTRATE AND ACETAMINOPHEN [Concomitant]
     Active Substance: ACETAMINOPHEN\HYDROCODONE BITARTRATE
     Indication: PAIN
     Dosage: 1 DF, EVERY 4 HRS
  10. CELEBREX [Suspect]
     Active Substance: CELECOXIB
     Dosage: 100 MG, UNK
     Route: 048
  11. HYDROCODONE [Concomitant]
     Active Substance: HYDROCODONE
     Indication: MIGRAINE
     Dosage: UNK, AS NEEDED (EVERY 4 TO 6 HOURS)
  12. HYDROCODONE [Concomitant]
     Active Substance: HYDROCODONE
     Indication: HEADACHE
     Dosage: UNK, AS NEEDED (EVERY 4 TO 6 HOURS)
  13. TIZANIDINE. [Concomitant]
     Active Substance: TIZANIDINE
     Dosage: 4 MG, UNK
  14. CELEBREX [Suspect]
     Active Substance: CELECOXIB
     Indication: ADENOMATOUS POLYPOSIS COLI
     Dosage: UNK
     Route: 048
     Dates: start: 1987
  15. CELEBREX [Suspect]
     Active Substance: CELECOXIB
     Dosage: 800 MG, DAILY (200 MG, TWO IN MORNING, TWO IN NIGHT)
     Route: 048
  16. CELEBREX [Suspect]
     Active Substance: CELECOXIB
     Dosage: 200 MG, 2X/DAY (100 MG TWO IN THE MORNING AND TWO AT NIGHT)
     Route: 048
  17. HYDROCODONE [Concomitant]
     Active Substance: HYDROCODONE
     Dosage: 325 MG, UNK
  18. BENADRYL [Concomitant]
     Active Substance: DIPHENHYDRAMINE HYDROCHLORIDE
     Dosage: UNK, 2X/DAY (24 HR 2XDAY)
  19. HYDROCODONE BITARTRATE AND ACETAMINOPHEN [Concomitant]
     Active Substance: ACETAMINOPHEN\HYDROCODONE BITARTRATE
     Indication: MIGRAINE

REACTIONS (34)
  - Muscle spasms [Not Recovered/Not Resolved]
  - Bone pain [Unknown]
  - Intentional product misuse [Unknown]
  - Rhinorrhoea [Unknown]
  - Drug effective for unapproved indication [Unknown]
  - Off label use [Unknown]
  - Dyspnoea [Unknown]
  - Pain [Not Recovered/Not Resolved]
  - Scar [Unknown]
  - Eye disorder [Unknown]
  - Product prescribing error [Unknown]
  - Product dispensing error [Unknown]
  - Migraine [Not Recovered/Not Resolved]
  - Rib fracture [Recovered/Resolved]
  - Anxiety [Recovered/Resolved]
  - Poor peripheral circulation [Recovered/Resolved]
  - Intentional product use issue [Unknown]
  - Hypertension [Not Recovered/Not Resolved]
  - Fall [Recovered/Resolved]
  - Loss of personal independence in daily activities [Not Recovered/Not Resolved]
  - Sleep disorder due to general medical condition, insomnia type [Unknown]
  - Visual impairment [Not Recovered/Not Resolved]
  - Wrist fracture [Recovered/Resolved]
  - Hand fracture [Recovered/Resolved]
  - Depression [Recovered/Resolved]
  - Stress [Unknown]
  - Cerebral disorder [Unknown]
  - Patella fracture [Unknown]
  - Lower limb fracture [Recovered/Resolved]
  - Memory impairment [Unknown]
  - Product use in unapproved indication [Unknown]
  - Cerebrovascular accident [Unknown]
  - Headache [Not Recovered/Not Resolved]
  - Agitation [Unknown]

NARRATIVE: CASE EVENT DATE: 2009
